FAERS Safety Report 9958469 (Version 2)
Quarter: 2014Q2

REPORT INFORMATION
  Report Type: Report from Study
  Country: BR (occurrence: BR)
  Receive Date: 20140305
  Receipt Date: 20140419
  Transmission Date: 20141212
  Serious: No
  Sender: FDA-Public Use
  Company Number: BR-ROCHE-1358783

PATIENT
  Sex: Female

DRUGS (1)
  1. ACTEMRA [Suspect]
     Indication: RHEUMATOID ARTHRITIS
     Route: 042
     Dates: start: 20140228

REACTIONS (5)
  - Dizziness [Recovered/Resolved]
  - Nausea [Recovered/Resolved]
  - Abdominal pain [Recovered/Resolved]
  - Dental caries [Recovered/Resolved]
  - Speech disorder [Recovered/Resolved]
